FAERS Safety Report 18436713 (Version 9)
Quarter: 2021Q2

REPORT INFORMATION
  Report Type: Report from Study
  Country: US (occurrence: US)
  Receive Date: 20201028
  Receipt Date: 20210611
  Transmission Date: 20210717
  Serious: Yes (Hospitalization, Other)
  Sender: FDA-Public Use
  Company Number: US-SHIRE-US202012013

PATIENT
  Sex: Female

DRUGS (2)
  1. HUMAN IMMUNOGLOBULIN; HYALURONIDASE [Suspect]
     Active Substance: HUMAN IMMUNOGLOBULIN G\HYALURONIDASE RECOMBINANT HUMAN
     Dosage: UNK, Q3WEEKS
     Route: 065
  2. HUMAN IMMUNOGLOBULIN; HYALURONIDASE [Suspect]
     Active Substance: HUMAN IMMUNOGLOBULIN G\HYALURONIDASE RECOMBINANT HUMAN
     Indication: IMMUNODEFICIENCY COMMON VARIABLE
     Dosage: UNK
     Route: 065

REACTIONS (38)
  - Vasculitis [Unknown]
  - Illness [Unknown]
  - Infusion site erythema [Unknown]
  - Fatigue [Unknown]
  - Stent removal [Unknown]
  - Hyperhidrosis [Unknown]
  - Systemic lupus erythematosus [Unknown]
  - Swelling [Unknown]
  - Inability to afford medication [Unknown]
  - Gait disturbance [Unknown]
  - Cataract [Unknown]
  - Sinusitis [Unknown]
  - Obstruction [Unknown]
  - Infusion site vesicles [Recovered/Resolved]
  - Pain [Unknown]
  - Ear pruritus [Unknown]
  - Infusion site pruritus [Unknown]
  - Stent placement [Unknown]
  - Pneumonia [Recovering/Resolving]
  - Dyspepsia [Unknown]
  - Dyspnoea [Unknown]
  - Abdominal pain [Unknown]
  - Device issue [Unknown]
  - Nephrolithiasis [Unknown]
  - Infection [Unknown]
  - Subcutaneous drug absorption impaired [Unknown]
  - Arthralgia [Unknown]
  - Pruritus [Unknown]
  - Breast cancer [Unknown]
  - Condition aggravated [Unknown]
  - Urosepsis [Unknown]
  - Sinus disorder [Unknown]
  - Eye pruritus [Unknown]
  - Joint swelling [Unknown]
  - Urinary tract infection [Unknown]
  - Oesophageal discomfort [Unknown]
  - Upper respiratory tract infection [Unknown]
  - Asthenia [Unknown]
